FAERS Safety Report 7139087-4 (Version None)
Quarter: 2010Q4

REPORT INFORMATION
  Report Type: 
  Country: None (occurrence: None)
  Receive Date: 20101206
  Receipt Date: 20101129
  Transmission Date: 20110411
  Serious: Yes (Life-Threatening)
  Sender: FDA-Public Use
  Company Number: B0683409A

PATIENT
  Sex: Male
  Weight: 71 kg

DRUGS (54)
  1. ALKERAN [Suspect]
     Indication: ALLOGENIC BONE MARROW TRANSPLANTATION THERAPY
     Dosage: 70MG PER DAY
     Route: 042
     Dates: start: 20091018, end: 20091019
  2. FLUDARABINE PHOSPHATE [Suspect]
     Indication: ALLOGENIC BONE MARROW TRANSPLANTATION THERAPY
     Dosage: 30MGM2 PER DAY
     Route: 042
     Dates: start: 20091016, end: 20091019
  3. TACROLIMUS [Concomitant]
     Indication: IMMUNOSUPPRESSION
     Dosage: .4MG PER DAY
     Route: 065
     Dates: start: 20091020, end: 20091105
  4. TACROLIMUS [Concomitant]
     Dosage: .3MG PER DAY
     Route: 065
     Dates: start: 20091204, end: 20100209
  5. METHOTREXATE [Concomitant]
     Indication: IMMUNOSUPPRESSION
     Dosage: 25MG PER DAY
     Route: 065
     Dates: start: 20091022, end: 20091022
  6. METHOTREXATE [Concomitant]
     Dosage: 17MG PER DAY
     Route: 065
     Dates: start: 20091024, end: 20091024
  7. METHOTREXATE [Concomitant]
     Dosage: 17MG PER DAY
     Route: 065
     Dates: start: 20091027, end: 20091027
  8. METHOTREXATE [Concomitant]
     Dosage: 17MG PER DAY
     Route: 065
     Dates: start: 20091101, end: 20091101
  9. URSO 250 [Concomitant]
     Dosage: 900MG PER DAY
     Route: 048
  10. VALTREX [Concomitant]
     Dosage: 1500MG PER DAY
     Route: 048
  11. ULCERLMIN [Concomitant]
     Dosage: 20ML PER DAY
     Route: 048
     Dates: end: 20091117
  12. GOODMIN [Concomitant]
     Route: 048
     Dates: start: 20091110, end: 20091114
  13. GASTER [Concomitant]
     Dosage: 20MG PER DAY
     Route: 048
     Dates: start: 20091110
  14. CALONAL [Concomitant]
     Route: 048
     Dates: start: 20091111
  15. POTASSIUM CHLORIDE [Concomitant]
     Dosage: 20ML PER DAY
     Route: 042
     Dates: end: 20091201
  16. VFEND [Concomitant]
     Dosage: 400MG PER DAY
     Route: 042
     Dates: end: 20091209
  17. AMBISOME [Concomitant]
     Dosage: 100MG PER DAY
     Route: 042
  18. BAKTAR [Concomitant]
     Dosage: 2IUAX PER DAY
     Route: 042
     Dates: start: 20091118, end: 20091206
  19. LOPEMIN [Concomitant]
     Dosage: 2MG PER DAY
     Route: 042
     Dates: start: 20091130, end: 20100103
  20. AZUNOL [Concomitant]
     Dosage: 40G PER DAY
     Route: 042
     Dates: start: 20091207
  21. HIRUDOID [Concomitant]
     Dosage: 25G PER DAY
     Route: 042
     Dates: start: 20091207
  22. SEPAMIT [Concomitant]
     Route: 042
     Dates: start: 20091209, end: 20091213
  23. SOLITA-T NO.3 [Concomitant]
     Dosage: 2500ML PER DAY
     Route: 042
     Dates: start: 20091206, end: 20091225
  24. HEPARIN [Concomitant]
     Dosage: 3ML PER DAY
     Dates: start: 20091203
  25. PROGRAF [Concomitant]
     Dosage: .3MG PER DAY
     Route: 048
     Dates: start: 20091221, end: 20091223
  26. MEROPENEM [Concomitant]
     Dosage: 2100MG PER DAY
     Route: 042
     Dates: end: 20091208
  27. ANTHROBIN P [Concomitant]
     Dosage: 1.5IU3 PER DAY
     Route: 042
     Dates: end: 20091230
  28. PHYSIO 35 [Concomitant]
     Dosage: 2500ML PER DAY
     Route: 042
     Dates: start: 20091124, end: 20091227
  29. PROTEAMIN [Concomitant]
     Dosage: 200ML PER DAY
     Route: 042
     Dates: start: 20091124, end: 20091227
  30. ELECTROLYTE FLUID [Concomitant]
     Dosage: 2ML PER DAY
     Route: 042
     Dates: start: 20091124, end: 20091227
  31. FRAGMIN [Concomitant]
     Dosage: 9ML PER DAY
     Route: 042
  32. NEOLAMIN [Concomitant]
     Dosage: 1IUAX PER DAY
     Route: 042
     Dates: start: 20091124, end: 20091227
  33. SODIUM CHLORIDE [Concomitant]
     Dosage: 80ML PER DAY
     Route: 042
     Dates: start: 20091124, end: 20091227
  34. FUROSEMIDE [Concomitant]
     Dosage: 20MG PER DAY
     Route: 042
     Dates: end: 20091229
  35. HUMAN IMMUNE GLOBULIN [Concomitant]
     Dosage: 5G PER DAY
     Route: 042
     Dates: start: 20091124, end: 20091214
  36. POTASSIUM CHLORIDE [Concomitant]
     Dosage: 5G PER DAY
     Route: 042
     Dates: start: 20091124, end: 20091214
  37. CONCLYTE-MG [Concomitant]
     Dosage: 10ML PER DAY
     Dates: end: 20091214
  38. PROGRAF [Concomitant]
     Dosage: .3MG PER DAY
     Route: 042
     Dates: start: 20091205
  39. AMIKACIN SULFATE [Concomitant]
     Dosage: 20MG PER DAY
     Dates: end: 20091106
  40. GRAN [Concomitant]
     Dosage: 1IUAX PER DAY
     Dates: end: 20091116
  41. ATROPINE SULFATE [Concomitant]
     Dosage: .5MG PER DAY
     Dates: start: 20091111, end: 20091214
  42. MIDAZOLAM HCL [Concomitant]
     Dosage: 10MG PER DAY
     Dates: start: 20091111, end: 20091214
  43. TARGOCID [Concomitant]
     Dosage: 800MG PER DAY
     Route: 042
     Dates: start: 20091107, end: 20091111
  44. GAMIMUNE N 5% [Concomitant]
     Dosage: 5G PER DAY
     Route: 042
     Dates: start: 20091110
  45. MAXIPIME [Concomitant]
     Dosage: 3G PER DAY
     Route: 042
     Dates: start: 20091110
  46. ALBUMIN (HUMAN) [Concomitant]
     Dosage: 100ML PER DAY
     Route: 042
     Dates: start: 20091126, end: 20091228
  47. SOLITA-T [Concomitant]
     Dosage: 500ML PER DAY
     Route: 042
     Dates: start: 20091130, end: 20091205
  48. ASPARA K [Concomitant]
     Dosage: 30ML PER DAY
     Route: 042
     Dates: start: 20091201
  49. SOLITA-T [Concomitant]
     Dosage: 500ML PER DAY
     Route: 042
     Dates: start: 20091201, end: 20091201
  50. SOLU-MEDROL [Concomitant]
     Dosage: 60ML PER DAY
     Route: 042
     Dates: start: 20091201, end: 20091231
  51. ALBUMIN (HUMAN) [Concomitant]
     Dosage: 500ML PER DAY
     Route: 042
     Dates: start: 20091202, end: 20091203
  52. MEYLON [Concomitant]
     Dosage: 100ML PER DAY
     Route: 042
     Dates: start: 20091203, end: 20091203
  53. CALCICOL [Concomitant]
     Dosage: 20ML PER DAY
     Route: 042
     Dates: start: 20091203, end: 20091223
  54. BENAMBAX [Concomitant]
     Dosage: 1IUAX PER DAY
     Dates: start: 20091204, end: 20091221

REACTIONS (3)
  - GRAFT VERSUS HOST DISEASE [None]
  - RESPIRATORY DISORDER [None]
  - SEPSIS [None]
